FAERS Safety Report 22169886 (Version 1)
Quarter: 2023Q2

REPORT INFORMATION
  Report Type: Spontaneous
  Country: JP (occurrence: JP)
  Receive Date: 20230404
  Receipt Date: 20230404
  Transmission Date: 20230721
  Serious: No
  Sender: FDA-Public Use
  Company Number: JP-PADAGIS-2023PAD00417

PATIENT

DRUGS (4)
  1. LEVOCETIRIZINE DIHYDROCHLORIDE [Suspect]
     Active Substance: LEVOCETIRIZINE DIHYDROCHLORIDE
     Indication: Rash
     Dosage: 5 MG, QD
     Route: 048
  2. DIFLUPREDNATE [Suspect]
     Active Substance: DIFLUPREDNATE
     Indication: Rash
     Dosage: UNK
     Route: 061
  3. ZINC [Concomitant]
     Active Substance: ZINC
     Indication: Blood zinc decreased
     Dosage: CONTAINING 14 MG OF ZINC, 11.2 MG OF VITAMIN B1, 1.3 MG OF VITAMIN B6, PER 2 TABLETS
     Route: 065
  4. ZINC [Concomitant]
     Active Substance: ZINC
     Dosage: 16 MG OF ZINC, 0.06 MG OF SELENIUM, 0.06 MG OF CHROMIUM, 0.056 ~ 0.56 MG OF CALCIUM, PER 2 TABLETS
     Route: 065

REACTIONS (1)
  - Drug ineffective for unapproved indication [Unknown]
